FAERS Safety Report 16084525 (Version 2)
Quarter: 2019Q1

REPORT INFORMATION
  Report Type: Report from Study
  Country: US (occurrence: US)
  Receive Date: 20190318
  Receipt Date: 20190329
  Transmission Date: 20190418
  Serious: Yes (Other)
  Sender: FDA-Public Use
  Company Number: US-JNJFOC-20190317886

PATIENT
  Sex: Male

DRUGS (1)
  1. IMBRUVICA [Suspect]
     Active Substance: IBRUTINIB
     Indication: NON-HODGKIN^S LYMPHOMA
     Route: 048
     Dates: start: 20190226

REACTIONS (10)
  - Blood count abnormal [Not Recovered/Not Resolved]
  - Dysgeusia [Unknown]
  - White blood cell count decreased [Unknown]
  - Haematochezia [Unknown]
  - Contusion [Unknown]
  - Hernia [Unknown]
  - Epistaxis [Unknown]
  - Diarrhoea [Unknown]
  - Platelet count decreased [Not Recovered/Not Resolved]
  - Splenomegaly [Recovering/Resolving]
